FAERS Safety Report 6593122-0 (Version None)
Quarter: 2010Q1

REPORT INFORMATION
  Report Type: 
  Country: None (occurrence: None)
  Receive Date: 20100222
  Receipt Date: 20100209
  Transmission Date: 20100710
  Serious: Yes (Other)
  Sender: FDA-Public Use
  Company Number: PHHY2010BR07848

PATIENT
  Sex: Female

DRUGS (2)
  1. DIOVAN HCT [Suspect]
     Indication: HYPERTENSION
     Dosage: 160/12.5 MG
     Route: 048
     Dates: start: 20080101
  2. DIOVAN HCT [Suspect]
     Dosage: 320/12.5 MG, 1 TABLET A DAY
     Route: 048

REACTIONS (2)
  - BLOOD PRESSURE INCREASED [None]
  - SOMNOLENCE [None]
